FAERS Safety Report 17451353 (Version 1)
Quarter: 2020Q1

REPORT INFORMATION
  Report Type: Spontaneous
  Country: US (occurrence: US)
  Receive Date: 20200224
  Receipt Date: 20200224
  Transmission Date: 20200409
  Serious: No
  Sender: FDA-Public Use
  Company Number: US-PFIZER INC-2020077830

PATIENT
  Sex: Female

DRUGS (2)
  1. TAPAZOLE [Suspect]
     Active Substance: METHIMAZOLE
     Indication: HYPERTHYROIDISM
     Dosage: UNK, DAILY [TAKE 20 A DAY]
  2. TAPAZOLE [Suspect]
     Active Substance: METHIMAZOLE
     Dosage: 5 MG, 4X/DAY

REACTIONS (6)
  - Product use issue [Unknown]
  - Off label use [Unknown]
  - Product colour issue [Unknown]
  - Drug ineffective [Unknown]
  - Poor quality product administered [Unknown]
  - Expired product administered [Unknown]
